FAERS Safety Report 9316528 (Version 1)
Quarter: 2013Q2

REPORT INFORMATION
  Report Type: Spontaneous
  Country: US (occurrence: None)
  Receive Date: 20130528
  Receipt Date: 20130528
  Transmission Date: 20140414
  Serious: Yes (Life-Threatening, Hospitalization, Disabling, Other)
  Sender: FDA-Public Use
  Company Number: None

PATIENT
  Age: 81 Year
  Sex: Female
  Weight: 42.64 kg

DRUGS (4)
  1. REMICADE [Suspect]
     Dosage: ONCE A MONTH
     Route: 042
  2. METHOTREXATE [Suspect]
     Dosage: DAILY BY MOUTH
     Route: 048
  3. REMICADE INFUSIONS [Concomitant]
  4. MTHOTREXATE [Concomitant]

REACTIONS (4)
  - Bronchitis [None]
  - Pneumonia [None]
  - Lymphoma [None]
  - Hepatic cirrhosis [None]
